FAERS Safety Report 24036154 (Version 1)
Quarter: 2024Q3

REPORT INFORMATION
  Report Type: Spontaneous
  Country: CN (occurrence: CN)
  Receive Date: 20240701
  Receipt Date: 20240701
  Transmission Date: 20241016
  Serious: Yes (Hospitalization, Other)
  Sender: TAKEDA
  Company Number: CN-TAKEDA-2024TUS063243

PATIENT
  Age: 79 Year
  Sex: Male
  Weight: 45 kg

DRUGS (3)
  1. IXAZOMIB [Suspect]
     Active Substance: IXAZOMIB
     Indication: Plasma cell myeloma
     Dosage: 3 MILLIGRAM, 3/WEEK
     Route: 048
     Dates: start: 20230601, end: 20240606
  2. DEXAMETHASONE [Suspect]
     Active Substance: DEXAMETHASONE
     Indication: Plasma cell myeloma
     Dosage: 9.75 MILLIGRAM, 1/WEEK
     Route: 048
     Dates: start: 202306
  3. LENALIDOMIDE [Suspect]
     Active Substance: LENALIDOMIDE
     Indication: Plasma cell myeloma
     Dosage: 10 MILLIGRAM, QD
     Route: 048
     Dates: start: 20230601, end: 20240606

REACTIONS (6)
  - Respiratory tract infection [Recovering/Resolving]
  - Dyspnoea [Recovering/Resolving]
  - Interstitial lung disease [Recovering/Resolving]
  - Lymphocyte count decreased [Recovering/Resolving]
  - Anaemia [Recovering/Resolving]
  - Platelet count decreased [Recovering/Resolving]

NARRATIVE: CASE EVENT DATE: 20240606
